FAERS Safety Report 9789261 (Version 1)
Quarter: 2013Q4

REPORT INFORMATION
  Report Type: Spontaneous
  Country: JP (occurrence: JP)
  Receive Date: 20131230
  Receipt Date: 20131230
  Transmission Date: 20140711
  Serious: Yes (Other)
  Sender: FDA-Public Use
  Company Number: JP-WATSON-2013-23572

PATIENT
  Age: 38 Year
  Sex: Female

DRUGS (3)
  1. PROGESTERONE (UNKNOWN) [Suspect]
     Indication: PROGESTIN REPLACEMENT THERAPY
     Dosage: 800 MG, DAILY
     Route: 067
     Dates: start: 20131018, end: 20131121
  2. ESTRANA [Concomitant]
     Indication: PRODUCT USED FOR UNKNOWN INDICATION
     Dosage: UNK
     Route: 065
     Dates: start: 20131013, end: 20131121
  3. DUVADILAN [Concomitant]
     Indication: PRODUCT USED FOR UNKNOWN INDICATION
     Dosage: UNK
     Route: 065
     Dates: start: 20131022, end: 20131022

REACTIONS (5)
  - Subchorionic haematoma [Recovering/Resolving]
  - Metrorrhagia [Recovered/Resolved]
  - Abdominal pain [Recovered/Resolved]
  - Vulvovaginal pruritus [Recovered/Resolved]
  - Maternal exposure during pregnancy [Unknown]
